FAERS Safety Report 13423623 (Version 1)
Quarter: 2017Q2

REPORT INFORMATION
  Report Type: Report from Study
  Country: US (occurrence: US)
  Receive Date: 20170410
  Receipt Date: 20170410
  Transmission Date: 20170830
  Serious: No
  Sender: FDA-Public Use
  Company Number: PHEH2017US010310

PATIENT
  Age: 59 Year
  Sex: Female
  Weight: 97.52 kg

DRUGS (1)
  1. COSENTYX [Suspect]
     Active Substance: SECUKINUMAB
     Indication: PSORIATIC ARTHROPATHY
     Dosage: 300 MG, QW
     Route: 058
     Dates: start: 20170327, end: 20170405

REACTIONS (5)
  - Ocular hyperaemia [Unknown]
  - Cough [Unknown]
  - Influenza like illness [Not Recovered/Not Resolved]
  - Heart rate increased [Unknown]
  - Swelling [Unknown]

NARRATIVE: CASE EVENT DATE: 20170327
